FAERS Safety Report 5331328-9 (Version None)
Quarter: 2007Q2

REPORT INFORMATION
  Report Type: 
  Country: None (occurrence: None)
  Receive Date: 20070301
  Receipt Date: 20060627
  Transmission Date: 20071010
  Serious: Yes (Other)
  Sender: FDA-Public Use
  Company Number: 2769

PATIENT
  Age: 17 Year
  Sex: Male

DRUGS (4)
  1. AMNESTEEM [Suspect]
     Indication: ACNE CYSTIC
     Dosage: SEE IMAGE
     Route: 048
     Dates: start: 20051220, end: 20060118
  2. AMNESTEEM [Suspect]
     Indication: ACNE CYSTIC
     Dosage: SEE IMAGE
     Route: 048
     Dates: start: 20060118, end: 20060201
  3. AMNESTEEM [Suspect]
     Indication: ACNE CYSTIC
     Dosage: SEE IMAGE
     Route: 048
     Dates: start: 20060201, end: 20060413
  4. AMNESTEEM [Suspect]
     Indication: ACNE CYSTIC
     Dosage: SEE IMAGE
     Route: 048
     Dates: start: 20060413, end: 20060620

REACTIONS (1)
  - BLOOD TRIGLYCERIDES INCREASED [None]
